FAERS Safety Report 5312471-7 (Version None)
Quarter: 2007Q2

REPORT INFORMATION
  Report Type: 
  Country: None (occurrence: None)
  Receive Date: 20070430
  Receipt Date: 20070108
  Transmission Date: 20071010
  Serious: No
  Sender: FDA-Public Use
  Company Number: 2006UW28512

PATIENT
  Age: 73 Year
  Sex: Female
  Weight: 64.9 kg

DRUGS (4)
  1. NEXIUM [Suspect]
     Indication: BARRETT'S OESOPHAGUS
     Route: 048
  2. NEXIUM [Suspect]
     Indication: GASTROOESOPHAGEAL REFLUX DISEASE
     Route: 048
  3. NEXIUM [Suspect]
     Route: 048
     Dates: end: 20060801
  4. NEXIUM [Suspect]
     Route: 048
     Dates: end: 20060801

REACTIONS (6)
  - ABDOMINAL DISTENSION [None]
  - BURNING SENSATION [None]
  - DIARRHOEA [None]
  - DYSPHONIA [None]
  - GASTRITIS [None]
  - HEADACHE [None]
